FAERS Safety Report 8397129-2 (Version None)
Quarter: 2012Q2

REPORT INFORMATION
  Report Type: 
  Country: None (occurrence: None)
  Receive Date: 20120530
  Receipt Date: 20120522
  Transmission Date: 20120825
  Serious: Yes (Life-Threatening, Other)
  Sender: FDA-Public Use
  Company Number: CA-ROCHE-1071939

PATIENT
  Sex: Female
  Weight: 63.56 kg

DRUGS (21)
  1. GLICLAZIDE [Concomitant]
     Indication: DIABETES MELLITUS
  2. CALCIUM CARBONATE [Concomitant]
  3. PANTOPRAZOLE [Concomitant]
  4. MABTHERA [Suspect]
     Indication: RHEUMATOID ARTHRITIS
     Dosage: DAY 1 AND DAY 15
     Route: 042
     Dates: start: 20100622, end: 20110829
  5. CEPHALEXIN [Concomitant]
  6. LATANOPROST [Concomitant]
     Indication: GLAUCOMA
  7. LYRICA [Concomitant]
  8. PREDNISONE TAB [Concomitant]
  9. BRIMONIDINE TARTRATE [Concomitant]
     Indication: GLAUCOMA
  10. TIMOLOL MALEATE [Concomitant]
  11. TRAZODONE HCL [Concomitant]
  12. VITAMIN B-12 [Concomitant]
  13. OXYCODONE HCL [Concomitant]
  14. ASPIRIN [Concomitant]
  15. DORZOLAMIDE [Concomitant]
  16. VITAMIN D [Concomitant]
  17. MICARDIS [Concomitant]
  18. WELLBUTRIN [Concomitant]
  19. ACETAMINOPHEN [Concomitant]
  20. MELOXICAM [Concomitant]
  21. MULTI VITAMIN/MINERAL [Concomitant]

REACTIONS (1)
  - LARGE INTESTINE PERFORATION [None]
